FAERS Safety Report 8950772 (Version 2)
Quarter: 2013Q1

REPORT INFORMATION
  Report Type: Spontaneous
  Country: US (occurrence: US)
  Receive Date: 20121207
  Receipt Date: 20130109
  Transmission Date: 20140127
  Serious: No
  Sender: FDA-Public Use
  Company Number: US-009507513-1212USA001951

PATIENT
  Age: 25 None
  Sex: Female
  Weight: 89.8 kg

DRUGS (1)
  1. NEXPLANON [Suspect]
     Indication: CONTRACEPTION
     Dosage: UNK
     Route: 059
     Dates: start: 20121109

REACTIONS (3)
  - Metrorrhagia [Unknown]
  - Metrorrhagia [Not Recovered/Not Resolved]
  - Dizziness [Unknown]
